FAERS Safety Report 8695826 (Version 2)
Quarter: 2012Q4

REPORT INFORMATION
  Report Type: 
  Country: US (occurrence: US)
  Receive Date: 20120731
  Receipt Date: 20120904
  Transmission Date: 20130627
  Serious: Yes (Hospitalization)
  Sender: FDA-Public Use
  Company Number: US-ELI_LILLY_AND_COMPANY-US201207005452

PATIENT
  Age: 55 Year
  Sex: Female

DRUGS (2)
  1. ZYPREXA RELPREVV [Suspect]
     Indication: SCHIZOPHRENIA
     Dosage: 405 mg, monthly (1/M)
     Route: 030
     Dates: start: 20120516, end: 20120815
  2. NEURONTIN [Concomitant]

REACTIONS (5)
  - Diet refusal [Recovered/Resolved with Sequelae]
  - Depressive symptom [Recovered/Resolved with Sequelae]
  - Urinary tract infection [Recovered/Resolved with Sequelae]
  - Oesophageal obstruction [Recovered/Resolved with Sequelae]
  - Failure to thrive [Recovered/Resolved with Sequelae]
